FAERS Safety Report 8299735-2 (Version None)
Quarter: 2012Q2

REPORT INFORMATION
  Report Type: 
  Country: None (occurrence: None)
  Receive Date: 20120419
  Receipt Date: 20120416
  Transmission Date: 20120825
  Serious: Yes (Death, Hospitalization)
  Sender: FDA-Public Use
  Company Number: US-GILEAD-2012-0052082

PATIENT
  Sex: Male

DRUGS (1)
  1. LETAIRIS [Suspect]
     Indication: PRODUCT USED FOR UNKNOWN INDICATION
     Dosage: 5 MG, UNK
     Route: 048
     Dates: start: 20120117

REACTIONS (5)
  - ABDOMINAL HERNIA [None]
  - RESPIRATORY ARREST [None]
  - CARDIAC ARREST [None]
  - SYNCOPE [None]
  - ENDOTRACHEAL INTUBATION [None]
